FAERS Safety Report 4675920-3 (Version None)
Quarter: 2005Q2

REPORT INFORMATION
  Report Type: 
  Country: None (occurrence: None)
  Receive Date: 20050527
  Receipt Date: 20050308
  Transmission Date: 20051028
  Serious: No
  Sender: FDA-Public Use
  Company Number: US-GLAXOSMITHKLINE-A0548813A

PATIENT
  Age: 54 Year
  Sex: Female

DRUGS (4)
  1. WELLBUTRIN XL [Suspect]
     Dosage: 150MG PER DAY
     Route: 048
     Dates: start: 20050214, end: 20050228
  2. CALTRATE [Concomitant]
  3. ASPIRIN [Concomitant]
  4. VIT C TAB [Concomitant]

REACTIONS (3)
  - PALMAR ERYTHEMA [None]
  - PRURITUS [None]
  - RASH GENERALISED [None]
